FAERS Safety Report 12405077 (Version 1)
Quarter: 2016Q2

REPORT INFORMATION
  Report Type: Spontaneous
  Country: US (occurrence: US)
  Receive Date: 20160525
  Receipt Date: 20160525
  Transmission Date: 20160815
  Serious: No
  Sender: FDA-Public Use
  Company Number: US-BIOGEN-2016BI00225693

PATIENT

DRUGS (2)
  1. TYSABRI [Suspect]
     Active Substance: NATALIZUMAB
     Indication: MULTIPLE SCLEROSIS
  2. COPAXONE [Concomitant]
     Active Substance: GLATIRAMER ACETATE

REACTIONS (3)
  - Burning sensation [Unknown]
  - Mass [Unknown]
  - Pain [Unknown]
